FAERS Safety Report 12776271 (Version 2)
Quarter: 2016Q4

REPORT INFORMATION
  Report Type: Report from Study
  Country: CA (occurrence: CA)
  Receive Date: 20160923
  Receipt Date: 20161017
  Transmission Date: 20170207
  Serious: Yes (Other)
  Sender: FDA-Public Use
  Company Number: CA-GILEAD-2016-0232941

PATIENT
  Age: 82 Year
  Sex: Male

DRUGS (8)
  1. RALTEGRAVIR. [Concomitant]
     Active Substance: RALTEGRAVIR
  2. BISOPROLOL [Concomitant]
     Active Substance: BISOPROLOL
  3. FOLIC ACID. [Concomitant]
     Active Substance: FOLIC ACID
  4. TRUVADA [Suspect]
     Active Substance: EMTRICITABINE\TENOFOVIR DISOPROXIL FUMARATE
     Indication: HIV INFECTION
     Dosage: 1 DF, UNK
     Route: 048
     Dates: start: 2006
  5. AMLODIPINE [Concomitant]
     Active Substance: AMLODIPINE BESYLATE
  6. TESTOSTERONE. [Concomitant]
     Active Substance: TESTOSTERONE
  7. CANDESARTAN [Suspect]
     Active Substance: CANDESARTAN
     Indication: CARDIAC FAILURE
     Dosage: 12 UNK, UNK
     Route: 048
     Dates: start: 2015
  8. VITAMIN B12 [Concomitant]
     Active Substance: CYANOCOBALAMIN

REACTIONS (2)
  - Renal injury [Not Recovered/Not Resolved]
  - Off label use [Not Recovered/Not Resolved]

NARRATIVE: CASE EVENT DATE: 20160706
